FAERS Safety Report 11090087 (Version 1)
Quarter: 2015Q2

REPORT INFORMATION
  Report Type: Spontaneous
  Country: GB (occurrence: GB)
  Receive Date: 20150505
  Receipt Date: 20150505
  Transmission Date: 20150821
  Serious: Yes (Other)
  Sender: FDA-Public Use
  Company Number: GB-PFIZER INC-2015148769

PATIENT
  Age: 52 Year
  Sex: Female
  Weight: 94 kg

DRUGS (13)
  1. ASPIRIN. [Concomitant]
     Active Substance: ASPIRIN
     Dosage: 1 DF, 1X/DAY, IN THE MORNING
     Dates: start: 20140224
  2. BENDROFLUMETHIAZIDE [Concomitant]
     Active Substance: BENDROFLUMETHIAZIDE
     Dosage: 1 DF, 1X/DAY, IN THE MORNING
     Dates: start: 20140224
  3. DOMPERIDONE [Concomitant]
     Active Substance: DOMPERIDONE
     Dosage: 2 DF, 3X/DAY
     Dates: start: 20140224
  4. FLUOXETINE [Concomitant]
     Active Substance: FLUOXETINE\FLUOXETINE HYDROCHLORIDE
     Dosage: 1 DF, 1X/DAY IN THE MORNING
     Dates: start: 20140224, end: 20150220
  5. MEDROXYPROGESTERONE ACETATE. [Concomitant]
     Active Substance: MEDROXYPROGESTERONE ACETATE
     Dosage: 1 DF, 2X/DAY ONE IN THE MORNING AND ONE IN THE EVENING
     Dates: start: 20140224
  6. RANITIDINE [Concomitant]
     Active Substance: RANITIDINE\RANITIDINE HYDROCHLORIDE
     Dosage: 1 DF, 2X/DAY ONE IN THE MORNING AND ONE IN THE EVENING
     Dates: start: 20140224
  7. ATORVASTATIN [Concomitant]
     Active Substance: ATORVASTATIN
     Dosage: 1 DF, 1X/DAY, AT BEDTIME
     Dates: start: 20140224
  8. CANDESARTAN [Concomitant]
     Active Substance: CANDESARTAN
     Dosage: 1 DF, 1X/DAY IN THE MORNING
     Dates: start: 20140224
  9. NORETHISTERONE [Concomitant]
     Active Substance: NORETHINDRONE
     Dosage: 1 DF, 3X/DAY
     Dates: start: 20140224
  10. SERTRALINE HCL [Suspect]
     Active Substance: SERTRALINE HYDROCHLORIDE
     Dosage: UNK
     Dates: start: 20150316
  11. ESTRADIOL. [Concomitant]
     Active Substance: ESTRADIOL
     Dosage: 1 DF, 1X/DAY IN THE MORNING
     Dates: start: 20140224
  12. BISOPROLOL [Concomitant]
     Active Substance: BISOPROLOL
     Dosage: 1 DF, 1X/DAY IN THE MORNING
     Dates: start: 20140224
  13. AMLODIPINE [Concomitant]
     Active Substance: AMLODIPINE BESYLATE
     Dosage: 1 DF, 1X/DAY, IN THE MORNING
     Dates: start: 20140224

REACTIONS (1)
  - Pharyngeal oedema [Recovered/Resolved]

NARRATIVE: CASE EVENT DATE: 20150411
